FAERS Safety Report 7358435-3 (Version None)
Quarter: 2011Q1

REPORT INFORMATION
  Report Type: 
  Country: None (occurrence: None)
  Receive Date: 20110314
  Receipt Date: 20110314
  Transmission Date: 20110831
  Serious: Yes (Life-Threatening)
  Sender: FDA-Public Use
  Company Number: None

PATIENT
  Sex: Male
  Weight: 69.9 kg

DRUGS (2)
  1. SEPTRA DS [Suspect]
     Indication: STAPHYLOCOCCAL INFECTION
     Dosage: 2 TABLETS BID ORAL
     Route: 048
  2. SEPTRA DS [Suspect]
     Indication: CELLULITIS
     Dosage: 2 TABLETS BID ORAL
     Route: 048

REACTIONS (5)
  - THROMBOCYTOPENIA [None]
  - FATIGUE [None]
  - DIZZINESS [None]
  - PYREXIA [None]
  - RASH [None]
